FAERS Safety Report 24424711 (Version 1)
Quarter: 2024Q4

REPORT INFORMATION
  Report Type: Spontaneous
  Country: CA (occurrence: CA)
  Receive Date: 20241010
  Receipt Date: 20241010
  Transmission Date: 20250115
  Serious: Yes (Other)
  Sender: BAUSCH AND LOMB
  Company Number: CA-BAUSCH-BL-2024-004782

PATIENT
  Age: 83 Year
  Sex: Female
  Weight: 55.842 kg

DRUGS (8)
  1. JUBLIA [Suspect]
     Active Substance: EFINACONAZOLE
     Indication: Onychomycosis
     Route: 061
     Dates: start: 20230203, end: 20240925
  2. JUBLIA [Suspect]
     Active Substance: EFINACONAZOLE
     Indication: Product use in unapproved indication
  3. SYNTHROID [Concomitant]
     Active Substance: LEVOTHYROXINE SODIUM
     Indication: Product used for unknown indication
     Dosage: ONCE DAILY
  4. VALACYCLOVIR [Concomitant]
     Active Substance: VALACYCLOVIR HYDROCHLORIDE
     Indication: Product used for unknown indication
     Dosage: SIVEM-VALACYCLOVIR, ONCE DAILY
  5. DICLOFENAC [Concomitant]
     Active Substance: DICLOFENAC
     Indication: Product used for unknown indication
     Dosage: LIPODERM CREAM, 3 TIMES DAILY AS NEEDED
  6. JAMP LATANOPROST/TIMOLO [Concomitant]
     Indication: Product used for unknown indication
     Dosage: ONCE IN EVENING.
  7. DYMISTA [Concomitant]
     Active Substance: AZELASTINE HYDROCHLORIDE\FLUTICASONE PROPIONATE
     Indication: Product used for unknown indication
     Dosage: 1 SPRAY AT NIGHT
  8. THEALOS DUO [Concomitant]
     Indication: Product used for unknown indication
     Dosage: AS NEEDED

REACTIONS (7)
  - Deafness [Unknown]
  - Therapeutic product effect incomplete [Unknown]
  - Product dose omission issue [Unknown]
  - Device delivery system issue [Unknown]
  - Product prescribing issue [Unknown]
  - Intentional product use issue [Unknown]
  - Accidental overdose [Unknown]

NARRATIVE: CASE EVENT DATE: 20230203
